FAERS Safety Report 6132351-7 (Version None)
Quarter: 2009Q1

REPORT INFORMATION
  Report Type: 
  Country: None (occurrence: None)
  Receive Date: 20090324
  Receipt Date: 20090319
  Transmission Date: 20090719
  Serious: Yes (Hospitalization)
  Sender: FDA-Public Use
  Company Number: 179391ISR

PATIENT
  Age: 70 Year
  Sex: Male

DRUGS (6)
  1. WARFARIN SODIUM [Suspect]
     Indication: CEREBROVASCULAR ACCIDENT PROPHYLAXIS
     Dosage: ORAL
     Route: 048
     Dates: start: 20061222, end: 20080924
  2. WARFARIN SODIUM [Suspect]
     Indication: EMBOLISM
     Dosage: ORAL
     Route: 048
     Dates: start: 20061222, end: 20080924
  3. TRANDOLAPRIL [Concomitant]
  4. TALLITON [Concomitant]
  5. ISOSORBIDE MONONITRATE [Concomitant]
  6. FLURBIPROFEN [Concomitant]

REACTIONS (4)
  - HAEMATOMA [None]
  - HAEMOGLOBIN DECREASED [None]
  - INTERNATIONAL NORMALISED RATIO INCREASED [None]
  - PAIN IN EXTREMITY [None]
